FAERS Safety Report 6210191-8 (Version None)
Quarter: 2009Q2

REPORT INFORMATION
  Report Type: 
  Country: None (occurrence: None)
  Receive Date: 20090601
  Receipt Date: 20090521
  Transmission Date: 20091009
  Serious: Yes (Life-Threatening)
  Sender: FDA-Public Use
  Company Number: RU-BAYER-200921127GPV

PATIENT
  Age: 59 Year
  Sex: Male

DRUGS (1)
  1. ULTRAVIST 300 [Suspect]
     Indication: DRUG USE FOR UNKNOWN INDICATION
     Route: 040

REACTIONS (1)
  - PULMONARY EMBOLISM [None]
